FAERS Safety Report 24158215 (Version 1)
Quarter: 2024Q3

REPORT INFORMATION
  Report Type: Spontaneous
  Country: CN (occurrence: CN)
  Receive Date: 20240731
  Receipt Date: 20240731
  Transmission Date: 20241017
  Serious: Yes (Hospitalization, Other)
  Sender: SANDOZ
  Company Number: CN-SANDOZ-SDZ2024CN068744

PATIENT
  Age: 38 Year
  Sex: Female
  Weight: 49 kg

DRUGS (2)
  1. VORICONAZOLE [Suspect]
     Active Substance: VORICONAZOLE
     Indication: Antifungal treatment
     Dosage: 400 MG, Q12H (FIRST DAY)
     Route: 048
     Dates: start: 20240723, end: 20240723
  2. VORICONAZOLE [Suspect]
     Active Substance: VORICONAZOLE
     Dosage: 200 MG, Q12H (NEXT DAY)
     Route: 048
     Dates: start: 20240724, end: 20240724

REACTIONS (9)
  - Electrocardiogram T wave abnormal [Unknown]
  - Facial spasm [Unknown]
  - Screaming [Unknown]
  - Abdominal distension [Unknown]
  - Peripheral swelling [Unknown]
  - Tremor [Unknown]
  - Dyspnoea [Unknown]
  - Sinus tachycardia [Unknown]
  - Hallucination [Recovered/Resolved]

NARRATIVE: CASE EVENT DATE: 20240724
